FAERS Safety Report 9477451 (Version 1)
Quarter: 2013Q3

REPORT INFORMATION
  Report Type: Spontaneous
  Country: CH (occurrence: CH)
  Receive Date: 20130826
  Receipt Date: 20130826
  Transmission Date: 20140515
  Serious: Yes (Death, Other)
  Sender: FDA-Public Use
  Company Number: CH-009507513-1308CHE009780

PATIENT
  Age: 62 Year
  Sex: Male

DRUGS (20)
  1. REMERON SOLTAB [Suspect]
     Indication: BIPOLAR DISORDER
     Dosage: 15 MG, QD
     Route: 048
     Dates: start: 20130621, end: 20130707
  2. REMERON SOLTAB [Suspect]
     Dosage: 30 MG, QD
     Route: 048
     Dates: start: 20130708, end: 20130708
  3. REMERON SOLTAB [Suspect]
     Dosage: 15 MG, QD
     Route: 048
     Dates: start: 20130709, end: 20130710
  4. ABILIFY [Suspect]
     Dosage: 5 MG, QD
     Route: 048
     Dates: start: 20130706, end: 20130706
  5. ABILIFY [Suspect]
     Dosage: 7.5 MG, QD
     Route: 048
     Dates: start: 20130707, end: 20130707
  6. ABILIFY [Suspect]
     Dosage: 5.5 MG, QD
     Route: 048
     Dates: start: 20130708, end: 20130708
  7. ABILIFY [Suspect]
     Dosage: 12.5 MG, QD
     Route: 048
     Dates: start: 20130709, end: 20130709
  8. ABILIFY [Suspect]
     Dosage: 7.5 MG, QD
     Route: 048
     Dates: start: 20130710, end: 20130710
  9. SERESTA [Suspect]
     Dosage: 45 MG, QD
     Route: 048
     Dates: start: 20130622, end: 20130622
  10. SERESTA [Suspect]
     Dosage: 30 MG, QD
     Route: 048
     Dates: start: 20130623, end: 20130624
  11. SERESTA [Suspect]
     Dosage: 120 MG, QD
     Route: 048
     Dates: start: 20130625, end: 20130630
  12. SERESTA [Suspect]
     Dosage: 105 MG, QD
     Route: 048
     Dates: start: 20130701, end: 20130704
  13. SERESTA [Suspect]
     Dosage: 90 MG, QD
     Route: 048
     Dates: start: 20130705, end: 20130708
  14. SERESTA [Suspect]
     Dosage: 75 MG, QD
     Route: 048
     Dates: start: 20130709, end: 20130711
  15. SIFROL [Suspect]
     Dosage: 0.25 MG, QD
     Route: 048
     Dates: start: 20130620, end: 20130711
  16. LITHIOFOR [Suspect]
     Dosage: 990 MG, QD
     Route: 048
     Dates: start: 20130621, end: 20130711
  17. DORMICUM [Suspect]
     Dosage: 7.5 MG, QD
     Route: 048
     Dates: start: 20130620, end: 20130624
  18. ASPIRIN CARDIO [Concomitant]
     Indication: CARDIOVASCULAR DISORDER
     Dosage: 100 MG, QD
     Route: 048
     Dates: start: 20130621, end: 20130711
  19. NORVASC [Concomitant]
     Indication: CARDIOVASCULAR DISORDER
     Dosage: 5 MG, QD
     Route: 048
     Dates: start: 20130621, end: 20130711
  20. CLOPIDOGREL [Concomitant]
     Indication: CARDIOVASCULAR DISORDER
     Dosage: 75 MG, QD
     Route: 048
     Dates: start: 20130621, end: 20130711

REACTIONS (1)
  - Completed suicide [Fatal]
